FAERS Safety Report 24122456 (Version 3)
Quarter: 2025Q1

REPORT INFORMATION
  Report Type: Spontaneous
  Country: FR (occurrence: FR)
  Receive Date: 20240723
  Receipt Date: 20250211
  Transmission Date: 20250409
  Serious: Yes (Hospitalization, Other)
  Sender: Haleon PLC
  Company Number: None

PATIENT
  Age: 60 Year
  Sex: Female
  Weight: 50.4 kg

DRUGS (1)
  1. IBUPROFEN [Suspect]
     Active Substance: IBUPROFEN
     Indication: Product used for unknown indication
     Route: 048

REACTIONS (4)
  - Erythema multiforme [Recovered/Resolved]
  - Allergy test negative [Recovered/Resolved]
  - Eosinophilia [Recovered/Resolved]
  - Hypersensitivity vasculitis [Recovered/Resolved]

NARRATIVE: CASE EVENT DATE: 20240112
